FAERS Safety Report 24552732 (Version 1)
Quarter: 2024Q4

REPORT INFORMATION
  Report Type: Spontaneous
  Country: DE (occurrence: DE)
  Receive Date: 20241027
  Receipt Date: 20241027
  Transmission Date: 20250115
  Serious: Yes (Hospitalization, Other)
  Sender: AUROBINDO
  Company Number: DE-009507513-2410DEU004019

PATIENT
  Sex: Female

DRUGS (8)
  1. CARBOPLATIN [Suspect]
     Active Substance: CARBOPLATIN
     Indication: Triple negative breast cancer
     Dosage: UNK
     Route: 065
  2. CARBOPLATIN [Suspect]
     Active Substance: CARBOPLATIN
     Dosage: UNK
     Route: 065
     Dates: start: 20240611, end: 20240611
  3. CARBOPLATIN [Suspect]
     Active Substance: CARBOPLATIN
     Dosage: UNK
     Route: 065
     Dates: start: 20240709, end: 20240709
  4. KEYTRUDA [Suspect]
     Active Substance: PEMBROLIZUMAB
     Indication: Triple negative breast cancer
     Dosage: 200 MILLIGRAM, EVERY 3 WEEKS
     Route: 065
     Dates: start: 202404, end: 202404
  5. KEYTRUDA [Suspect]
     Active Substance: PEMBROLIZUMAB
     Dosage: 200 MG EVERY 3 WEEKS
     Route: 065
     Dates: start: 202405, end: 202405
  6. KEYTRUDA [Suspect]
     Active Substance: PEMBROLIZUMAB
     Dosage: 200 MG EVERY 3 WEEKS, CYCLE 3
     Route: 065
     Dates: start: 20240611, end: 20240611
  7. KEYTRUDA [Suspect]
     Active Substance: PEMBROLIZUMAB
     Dosage: 200 MG EVERY 3 WEEKS, CYCLE 4
     Route: 065
     Dates: start: 20240709, end: 20240709
  8. KEYTRUDA [Suspect]
     Active Substance: PEMBROLIZUMAB
     Dosage: 200 MILLIGRAM, EVERY 3 WEEKS
     Route: 065
     Dates: start: 20240722

REACTIONS (4)
  - Pyrexia [Recovered/Resolved]
  - Malignant neoplasm progression [Unknown]
  - Inappropriate schedule of product administration [Unknown]
  - Off label use [Unknown]

NARRATIVE: CASE EVENT DATE: 20240101
